FAERS Safety Report 15919207 (Version 3)
Quarter: 2019Q4

REPORT INFORMATION
  Report Type: Report from Study
  Country: US (occurrence: US)
  Receive Date: 20190205
  Receipt Date: 20191223
  Transmission Date: 20200122
  Serious: No
  Sender: FDA-Public Use
  Company Number: PHEH2019US004739

PATIENT
  Sex: Female

DRUGS (1)
  1. COSENTYX [Suspect]
     Active Substance: SECUKINUMAB
     Indication: PSORIASIS
     Dosage: 300 MG, QMO
     Route: 058

REACTIONS (6)
  - Macule [Not Recovered/Not Resolved]
  - Drug ineffective [Unknown]
  - Back pain [Not Recovered/Not Resolved]
  - Back disorder [Unknown]
  - Malaise [Unknown]
  - Psoriasis [Unknown]
